FAERS Safety Report 5688412-X (Version None)
Quarter: 2008Q1

REPORT INFORMATION
  Report Type: 
  Country: None (occurrence: None)
  Receive Date: 20080331
  Receipt Date: 20080228
  Transmission Date: 20080703
  Serious: No
  Sender: FDA-Public Use
  Company Number: US-BAYER-200815470NA

PATIENT
  Age: 69 Year
  Sex: Male
  Weight: 95 kg

DRUGS (1)
  1. AVELOX [Suspect]
     Indication: INFLUENZA
     Route: 048
     Dates: start: 20080228

REACTIONS (1)
  - DIARRHOEA [None]
